FAERS Safety Report 11353203 (Version 1)
Quarter: 2015Q3

REPORT INFORMATION
  Report Type: Spontaneous
  Country: US (occurrence: US)
  Receive Date: 20150807
  Receipt Date: 20150807
  Transmission Date: 20151125
  Serious: No
  Sender: FDA-Public Use
  Company Number: US-JNJFOC-20140902973

PATIENT

DRUGS (2)
  1. WOMENS ROGAINE [Suspect]
     Active Substance: MINOXIDIL
     Route: 061
  2. WOMENS ROGAINE [Suspect]
     Active Substance: MINOXIDIL
     Indication: ALOPECIA
     Route: 061

REACTIONS (7)
  - Alopecia [Unknown]
  - Trichorrhexis [Unknown]
  - Hair disorder [Unknown]
  - Dermatitis [Unknown]
  - Injury [Unknown]
  - Thermal burn [Unknown]
  - Product label issue [Unknown]
